FAERS Safety Report 4326614-5 (Version None)
Quarter: 2004Q1

REPORT INFORMATION
  Report Type: 
  Country: None (occurrence: None)
  Receive Date: 20040325
  Receipt Date: 20040105
  Transmission Date: 20041129
  Serious: Yes (Hospitalization)
  Sender: FDA-Public Use
  Company Number: US062368

PATIENT
  Age: 67 Year
  Sex: Female

DRUGS (5)
  1. NEULASTA [Suspect]
     Indication: CHEMOTHERAPY
     Dosage: 6 MG, AFTER CHEMO. SC
     Route: 058
     Dates: start: 20031103
  2. PACLITAXEL [Concomitant]
  3. GEMCITABINE HCL [Concomitant]
  4. LORATADINE [Concomitant]
  5. IBUPROFEN [Concomitant]

REACTIONS (3)
  - ABDOMINAL PAIN [None]
  - DIARRHOEA [None]
  - PYREXIA [None]
